FAERS Safety Report 5652838-0 (Version None)
Quarter: 2008Q1

REPORT INFORMATION
  Report Type: 
  Country: None (occurrence: None)
  Receive Date: 20080131
  Receipt Date: 20071001
  Transmission Date: 20080703
  Serious: No
  Sender: FDA-Public Use
  Company Number: US200708001084

PATIENT
  Age: 62 Year
  Sex: Male

DRUGS (7)
  1. BYETTA [Suspect]
     Indication: TYPE 2 DIABETES MELLITUS
     Dosage: 10 UG, 2/D, SUBCUTANEOUS
     Route: 058
     Dates: start: 20070514
  2. EXENATIDE 10MCG PEN, DISPOSABLE DEVICE (EXENATIDE OEN (10MCG)) PEN,DIS [Concomitant]
  3. GLUCOPHAGE [Concomitant]
  4. INSULIN (INSULIN) [Concomitant]
  5. COENZYME Q10 [Concomitant]
  6. EXOTRIN (ACETYSALICYLIC ACID) [Concomitant]
  7. PRINIVIL [Concomitant]

REACTIONS (1)
  - CORONARY ARTERY DISEASE [None]
